FAERS Safety Report 18125722 (Version 1)
Quarter: 2020Q3

REPORT INFORMATION
  Report Type: Spontaneous
  Country: US (occurrence: US)
  Receive Date: 20200807
  Receipt Date: 20200807
  Transmission Date: 20201103
  Serious: Yes (Other)
  Sender: FDA-Public Use
  Company Number: US-PFIZER INC-2020301306

PATIENT
  Age: 5 Year
  Sex: Male

DRUGS (1)
  1. PHENYTOIN. [Suspect]
     Active Substance: PHENYTOIN
     Indication: EPILEPSY

REACTIONS (3)
  - Anticonvulsant drug level abnormal [Unknown]
  - Seizure [Unknown]
  - Drug intolerance [Unknown]

NARRATIVE: CASE EVENT DATE: 1984
